FAERS Safety Report 4451930-6 (Version None)
Quarter: 2004Q3

REPORT INFORMATION
  Report Type: 
  Country: None (occurrence: None)
  Receive Date: 20040913
  Receipt Date: 20040726
  Transmission Date: 20050211
  Serious: No
  Sender: FDA-Public Use
  Company Number: 2004-BP-06152BP(0)

PATIENT
  Age: 70 Year
  Sex: Female

DRUGS (6)
  1. SPIRIVA [Suspect]
     Indication: CHRONIC OBSTRUCTIVE AIRWAYS DISEASE
     Dosage: 18 MCG (18 MCG, 1 IN 1 D), HI
     Dates: start: 20040707
  2. CARDIZEM [Suspect]
     Dosage: PO
     Route: 048
     Dates: start: 20040607, end: 20040709
  3. ADVAIR (SERETIDE MITE) [Concomitant]
  4. GUAIFENEX (ENTEX) [Concomitant]
  5. LANOXIN [Concomitant]
  6. SINGULAIR [Concomitant]

REACTIONS (1)
  - RASH GENERALISED [None]
